FAERS Safety Report 16934597 (Version 1)
Quarter: 2019Q4

REPORT INFORMATION
  Report Type: Spontaneous
  Country: US (occurrence: US)
  Receive Date: 20191018
  Receipt Date: 20191018
  Transmission Date: 20200122
  Serious: No
  Sender: FDA-Public Use
  Company Number: US-ASTRAZENECA-2019SF35621

PATIENT
  Sex: Male

DRUGS (1)
  1. BYDUREON BCISE [Suspect]
     Active Substance: EXENATIDE
     Route: 058
     Dates: start: 2019

REACTIONS (6)
  - Device leakage [Unknown]
  - Injection site haemorrhage [Unknown]
  - Injection site mass [Unknown]
  - Incorrect dose administered [Unknown]
  - Device issue [Unknown]
  - Wrong technique in device usage process [Unknown]
